FAERS Safety Report 18347296 (Version 1)
Quarter: 2020Q4

REPORT INFORMATION
  Report Type: Spontaneous
  Country: JP (occurrence: JP)
  Receive Date: 20201005
  Receipt Date: 20201005
  Transmission Date: 20210114
  Serious: Yes (Other)
  Sender: FDA-Public Use
  Company Number: JP-LUNDBECK-DKLU3010804

PATIENT
  Age: 10 Month
  Sex: Female
  Weight: 10 kg

DRUGS (15)
  1. SABRIL [Suspect]
     Active Substance: VIGABATRIN
     Dosage: DAILY DOSE:72 MG/KG BID
     Route: 048
     Dates: start: 20200204, end: 20200324
  2. SABRIL [Suspect]
     Active Substance: VIGABATRIN
     Dosage: DAILY DOSE:132 MG/KG BID
     Route: 048
     Dates: start: 20190912, end: 20191010
  3. LEVETIRACETAM. [Concomitant]
     Active Substance: LEVETIRACETAM
     Indication: INFANTILE SPASMS
     Route: 065
     Dates: end: 20181114
  4. SABRIL [Suspect]
     Active Substance: VIGABATRIN
     Route: 048
     Dates: start: 20190716, end: 20190911
  5. L CARTIN [Concomitant]
     Active Substance: LEVOCARNITINE HYDROCHLORIDE
     Indication: CARNITINE DEFICIENCY
     Route: 065
  6. SABRIL [Suspect]
     Active Substance: VIGABATRIN
     Dosage: DAILY DOSE: 60 MG/KG/DAY, BID (ACTUAL DOSE: 600 MG/DAY)
     Route: 048
     Dates: start: 20190530, end: 20190617
  7. SABRIL [Suspect]
     Active Substance: VIGABATRIN
     Route: 048
     Dates: start: 20190618, end: 20190626
  8. SABRIL [Suspect]
     Active Substance: VIGABATRIN
     Route: 048
     Dates: start: 20190627, end: 20190715
  9. SABRIL [Suspect]
     Active Substance: VIGABATRIN
     Dosage: DAILY DOSE:106 MG/KG BID
     Route: 048
     Dates: start: 20191011, end: 20200106
  10. SABRIL [Suspect]
     Active Substance: VIGABATRIN
     Dosage: DAILY DOSE:91 MG/KG BID
     Route: 048
     Dates: start: 20200107, end: 20200203
  11. SABRIL [Suspect]
     Active Substance: VIGABATRIN
     Dosage: DAILY DOSE:16 MG/KG BID
     Route: 048
     Dates: start: 20200519, end: 20200617
  12. SABRIL [Suspect]
     Active Substance: VIGABATRIN
     Dosage: DAILY DOSE:31 MG/KG BID
     Route: 048
     Dates: start: 20200424, end: 20200518
  13. SABRIL [Suspect]
     Active Substance: VIGABATRIN
     Indication: INFANTILE SPASMS
     Dosage: DAILY DOSE: 43 MG/KG/DAY, BID (ACTUAL DOSE: 400 MG/DAY)
     Route: 048
     Dates: start: 20180809, end: 20190529
  14. SABRIL [Suspect]
     Active Substance: VIGABATRIN
     Dosage: DAILY DOSE:47 MG/KG BID
     Route: 048
     Dates: start: 20200325, end: 20200423
  15. VALPROATE SODIUM. [Concomitant]
     Active Substance: VALPROATE SODIUM
     Indication: INFANTILE SPASMS
     Route: 065
     Dates: end: 20200310

REACTIONS (2)
  - Drug ineffective [Unknown]
  - Magnetic resonance imaging brain abnormal [Recovering/Resolving]

NARRATIVE: CASE EVENT DATE: 20181114
